FAERS Safety Report 12911768 (Version 2)
Quarter: 2016Q4

REPORT INFORMATION
  Report Type: Spontaneous
  Country: US (occurrence: US)
  Receive Date: 20161104
  Receipt Date: 20161207
  Transmission Date: 20170207
  Serious: No
  Sender: FDA-Public Use
  Company Number: US-GLAXOSMITHKLINE-US2016161888

PATIENT
  Age: 62 Year
  Sex: Male

DRUGS (1)
  1. TRANSDERM SCOP [Suspect]
     Active Substance: SCOPOLAMINE
     Indication: MOTION SICKNESS
     Dosage: UNK, REPLACE THE PATCH EVERY 2 DAYS

REACTIONS (3)
  - Off label use [Unknown]
  - Circumstance or information capable of leading to medication error [Unknown]
  - Product quality issue [Unknown]
